FAERS Safety Report 11394801 (Version 1)
Quarter: 2015Q3

REPORT INFORMATION
  Report Type: Spontaneous
  Country: US (occurrence: US)
  Receive Date: 20150819
  Receipt Date: 20150819
  Transmission Date: 20151125
  Serious: Yes (Other)
  Sender: FDA-Public Use
  Company Number: US-HOSPIRA-1744984

PATIENT
  Age: 46 Year
  Sex: Male

DRUGS (1)
  1. SODIUM NITROPRUSSIDE [Suspect]
     Active Substance: SODIUM NITROPRUSSIDE
     Indication: BLOOD PRESSURE MANAGEMENT
     Dosage: 0.4 MCG/KG/MIN
     Route: 042

REACTIONS (1)
  - Hypoxia [Recovered/Resolved]
